FAERS Safety Report 5750626-8 (Version None)
Quarter: 2008Q2

REPORT INFORMATION
  Report Type: 
  Country: None (occurrence: None)
  Receive Date: 20080528
  Receipt Date: 20080514
  Transmission Date: 20081010
  Serious: No
  Sender: FDA-Public Use
  Company Number: US-ABBOTT-08P-163-0451821-00

PATIENT
  Sex: Female
  Weight: 62.652 kg

DRUGS (5)
  1. SIMCOR [Suspect]
     Indication: BLOOD CHOLESTEROL INCREASED
     Dosage: 1 TABLET AT HOUR OF SLEEP
     Route: 048
     Dates: start: 20080501, end: 20080515
  2. HYZAAR [Concomitant]
     Indication: HYPERTENSION
     Route: 048
  3. CENTRUM SILVER [Concomitant]
     Indication: VITAMIN SUPPLEMENTATION
     Route: 048
  4. ASPIRIN [Concomitant]
     Indication: PROPHYLAXIS
     Route: 048
  5. FISH OIL [Concomitant]
     Indication: DRUG USE FOR UNKNOWN INDICATION
     Dosage: 1 TABLET DAILY
     Route: 048

REACTIONS (1)
  - DIARRHOEA [None]
